FAERS Safety Report 15710748 (Version 2)
Quarter: 2019Q1

REPORT INFORMATION
  Report Type: Spontaneous
  Country: US (occurrence: US)
  Receive Date: 20181211
  Receipt Date: 20190103
  Transmission Date: 20190417
  Serious: Yes (Other)
  Sender: FDA-Public Use
  Company Number: US-SAKK-2018SA335610AA

PATIENT
  Age: 63 Year
  Sex: Female

DRUGS (1)
  1. LANTUS SOLOSTAR [Suspect]
     Active Substance: INSULIN GLARGINE
     Indication: TYPE 2 DIABETES MELLITUS
     Dosage: 28 U, HS
     Route: 065

REACTIONS (5)
  - Product use issue [Unknown]
  - Underdose [Unknown]
  - Injection site bruising [Unknown]
  - Glaucoma [Unknown]
  - Product use complaint [Unknown]
